FAERS Safety Report 6686325-8 (Version None)
Quarter: 2010Q2

REPORT INFORMATION
  Report Type: 
  Country: None (occurrence: None)
  Receive Date: 20100414
  Receipt Date: 20100401
  Transmission Date: 20101027
  Serious: Yes (Hospitalization)
  Sender: FDA-Public Use
  Company Number: 2010BM000088

PATIENT
  Age: 14 Year
  Sex: Male

DRUGS (1)
  1. NAGLAZYME [Suspect]
     Indication: MUCOPOLYSACCHARIDOSIS VI
     Dosage: 20 MG;QW;IVDRP
     Route: 041
     Dates: start: 20050101

REACTIONS (1)
  - RESPIRATORY FAILURE [None]
